FAERS Safety Report 11364301 (Version 1)
Quarter: 2015Q3

REPORT INFORMATION
  Report Type: Spontaneous
  Country: US (occurrence: None)
  Receive Date: 20150810
  Receipt Date: 20150810
  Transmission Date: 20151125
  Serious: Yes (Other)
  Sender: FDA-Public Use
  Company Number: None

PATIENT
  Age: 45 Year
  Sex: Female
  Weight: 97.52 kg

DRUGS (9)
  1. LAMICTAL [Concomitant]
     Active Substance: LAMOTRIGINE
  2. MULTIVITE [Concomitant]
     Active Substance: VITAMINS
  3. FISH OIL [Concomitant]
     Active Substance: FISH OIL
  4. SYNTHROID [Concomitant]
     Active Substance: LEVOTHYROXINE SODIUM
  5. METFORMIN [Concomitant]
     Active Substance: METFORMIN HYDROCHLORIDE
  6. METOPROLOL SUCCINATE. [Suspect]
     Active Substance: METOPROLOL SUCCINATE
     Indication: BLOOD PRESSURE MEASUREMENT
     Dosage: 1 PILL
     Route: 048
     Dates: start: 20150725, end: 20150806
  7. COQ10 [Concomitant]
     Active Substance: UBIDECARENONE
  8. METOPROLOL SUCCINATE. [Suspect]
     Active Substance: METOPROLOL SUCCINATE
     Indication: POSTURAL ORTHOSTATIC TACHYCARDIA SYNDROME
     Dosage: 1 PILL
     Route: 048
     Dates: start: 20150725, end: 20150806
  9. LITHIUM. [Concomitant]
     Active Substance: LITHIUM

REACTIONS (12)
  - Peripheral swelling [None]
  - Dizziness [None]
  - Drug ineffective [None]
  - Headache [None]
  - Sensory disturbance [None]
  - Tension headache [None]
  - Blood pressure increased [None]
  - Cardiac flutter [None]
  - Feeling abnormal [None]
  - Drug administration error [None]
  - Dysgeusia [None]
  - Disorientation [None]

NARRATIVE: CASE EVENT DATE: 20150801
